FAERS Safety Report 7118387-8 (Version None)
Quarter: 2010Q4

REPORT INFORMATION
  Report Type: 
  Country: None (occurrence: None)
  Receive Date: 20101123
  Receipt Date: 20101116
  Transmission Date: 20110411
  Serious: Yes (Hospitalization)
  Sender: FDA-Public Use
  Company Number: FR-SANOFI-AVENTIS-2010SA069430

PATIENT
  Age: 62 Year
  Sex: Male

DRUGS (15)
  1. KERLONE [Suspect]
     Route: 048
     Dates: start: 20100810
  2. TRANXENE [Suspect]
     Indication: ANXIETY
     Route: 048
     Dates: start: 20100822, end: 20100830
  3. TRANXENE [Suspect]
     Route: 048
     Dates: start: 20100831
  4. ZYPREXA [Suspect]
     Indication: BIPOLAR DISORDER
     Route: 048
     Dates: start: 20100210, end: 20100830
  5. ZYPREXA [Suspect]
     Route: 048
     Dates: start: 20100831, end: 20100928
  6. ZYPREXA [Suspect]
     Route: 048
     Dates: start: 20100929, end: 20101011
  7. EFFEXOR [Suspect]
     Indication: DEPRESSION
     Route: 048
     Dates: start: 20100721, end: 20100822
  8. EFFEXOR [Suspect]
     Route: 048
     Dates: start: 20100823, end: 20100830
  9. EFFEXOR [Suspect]
     Route: 048
     Dates: start: 20100831, end: 20100906
  10. EFFEXOR [Suspect]
     Route: 048
     Dates: start: 20100907, end: 20100923
  11. XANAX [Concomitant]
     Indication: ANXIETY
     Route: 048
     Dates: start: 20100416, end: 20100822
  12. ANTIDEPRESSANTS [Concomitant]
     Indication: DEPRESSION
     Route: 048
     Dates: start: 20100906, end: 20100922
  13. ANTIDEPRESSANTS [Concomitant]
     Route: 048
     Dates: start: 20100923, end: 20100923
  14. DEROXAT [Concomitant]
     Route: 048
     Dates: start: 20091201, end: 20100804
  15. FLUDEX [Concomitant]

REACTIONS (1)
  - TYPE 1 DIABETES MELLITUS [None]
